FAERS Safety Report 16012610 (Version 2)
Quarter: 2021Q1

REPORT INFORMATION
  Report Type: Report from Study
  Country: US (occurrence: US)
  Receive Date: 20190227
  Receipt Date: 20210106
  Transmission Date: 20210419
  Serious: Yes (Other)
  Sender: FDA-Public Use
  Company Number: US-MYLANLABS-2019M1017114

PATIENT
  Age: 60 Year
  Sex: Female

DRUGS (2)
  1. ESOMEPRAZOLE. [Suspect]
     Active Substance: ESOMEPRAZOLE MAGNESIUM
     Indication: GASTROOESOPHAGEAL REFLUX DISEASE
     Dosage: 40 MILLIGRAM, QD
     Route: 065
  2. NIVOLUMAB [Suspect]
     Active Substance: NIVOLUMAB
     Indication: MALIGNANT MELANOMA
     Dosage: 3 MILLIGRAM/KILOGRAM, SIX CYCLES
     Route: 065

REACTIONS (2)
  - Tubulointerstitial nephritis [Recovered/Resolved]
  - Glomerulonephritis [Recovered/Resolved]
